FAERS Safety Report 21835990 (Version 1)
Quarter: 2023Q1

REPORT INFORMATION
  Report Type: Spontaneous
  Country: NL (occurrence: NL)
  Receive Date: 20230109
  Receipt Date: 20230109
  Transmission Date: 20230417
  Serious: Yes (Other)
  Sender: FDA-Public Use
  Company Number: NL-ABBVIE-4213994

PATIENT
  Age: 75 Year
  Sex: Male

DRUGS (4)
  1. CLOZAPINE [Suspect]
     Active Substance: CLOZAPINE
     Indication: Restlessness
     Dosage: UNK
     Route: 065
     Dates: start: 202211, end: 202211
  2. CARBIDOPA\LEVODOPA [Suspect]
     Active Substance: CARBIDOPA\LEVODOPA
     Indication: Parkinson^s disease
     Dosage: UNK (MD: 4.0 ML; CD: 2.6 ML/H; ED: 1.5 MLFIRST ADMIN DATE: 2022)
     Route: 065
  3. CARBIDOPA\LEVODOPA [Suspect]
     Active Substance: CARBIDOPA\LEVODOPA
     Dosage: UNK (LAST ADMIN DATE: 2022)
     Route: 065
     Dates: start: 20220628
  4. POLYETHYLENE GLYCOLS [Concomitant]
     Active Substance: POLYETHYLENE GLYCOLS
     Indication: Bowel movement irregularity
     Dosage: UNK
     Route: 065

REACTIONS (10)
  - Dementia [Not Recovered/Not Resolved]
  - Device dislocation [Unknown]
  - Dyskinesia [Unknown]
  - Bowel movement irregularity [Not Recovered/Not Resolved]
  - Restlessness [Unknown]
  - Somnolence [Not Recovered/Not Resolved]
  - General physical health deterioration [Not Recovered/Not Resolved]
  - Hyperkinesia [Unknown]
  - Weight increased [Not Recovered/Not Resolved]
  - Obsessive-compulsive disorder [Not Recovered/Not Resolved]
